FAERS Safety Report 12642513 (Version 5)
Quarter: 2017Q1

REPORT INFORMATION
  Report Type: Report from Study
  Country: DE (occurrence: DE)
  Receive Date: 20160810
  Receipt Date: 20170127
  Transmission Date: 20170428
  Serious: Yes (Death, Life-Threatening, Hospitalization, Other)
  Sender: FDA-Public Use
  Company Number: PHHY2016DE099614

PATIENT
  Age: 77 Year
  Sex: Female
  Weight: 70 kg

DRUGS (10)
  1. DESFERAL [Suspect]
     Active Substance: DEFEROXAMINE MESYLATE
     Dosage: 28.57 MG/KG (250 ML, 2000 MG), QD
     Route: 042
     Dates: start: 20160304, end: 20160718
  2. ASPIRIN. [Concomitant]
     Active Substance: ASPIRIN
     Dosage: 100 MG, QD
     Route: 065
  3. SIMVASTATIN. [Concomitant]
     Active Substance: SIMVASTATIN
     Indication: PRODUCT USED FOR UNKNOWN INDICATION
     Dosage: 20 MG, BID
     Route: 065
  4. ACTRAPID [Concomitant]
     Active Substance: INSULIN HUMAN
     Indication: DIABETES MELLITUS
     Dosage: UNK, /DEPENDS ON VALUE,UNKNOWN FREQUENCY
     Route: 065
  5. ASPIRIN. [Concomitant]
     Active Substance: ASPIRIN
     Indication: PRODUCT USED FOR UNKNOWN INDICATION
     Dosage: 100 MG, BID
     Route: 065
  6. DESFERAL [Suspect]
     Active Substance: DEFEROXAMINE MESYLATE
     Indication: IRON OVERLOAD
     Dosage: 2000 MG, UNK
     Route: 042
     Dates: start: 20140608, end: 20140608
  7. EPOETIN [Concomitant]
     Active Substance: ERYTHROPOIETIN
     Indication: ANAEMIA
     Dosage: 30 IU QW
     Route: 058
     Dates: start: 201508
  8. SIMVASTATIN. [Concomitant]
     Active Substance: SIMVASTATIN
     Dosage: 20 MG, QD
     Route: 065
  9. EXJADE [Suspect]
     Active Substance: DEFERASIROX
     Indication: IRON OVERLOAD
     Dosage: 7.7 MG/KG (500 MG), QD
     Route: 048
     Dates: start: 20160719
  10. ISOCOM [Concomitant]
     Indication: RESTLESS LEGS SYNDROME
     Dosage: 1 DF, QD  (200/50 MG ONCE DAILY)
     Route: 065

REACTIONS (18)
  - Haemoglobin decreased [Fatal]
  - Leukopenia [Recovered/Resolved]
  - Myelodysplastic syndrome [Unknown]
  - Dizziness [Recovered/Resolved]
  - Urosepsis [Fatal]
  - Vomiting [Recovered/Resolved]
  - Nausea [Unknown]
  - Haemoglobin decreased [Recovered/Resolved]
  - Haemoglobin decreased [Recovered/Resolved]
  - Concomitant disease aggravated [Recovered/Resolved]
  - Nausea [Recovered/Resolved]
  - Vomiting [Unknown]
  - General physical health deterioration [Unknown]
  - Leukopenia [Unknown]
  - Serum ferritin increased [Not Recovered/Not Resolved]
  - Diarrhoea [Recovered/Resolved]
  - Drug ineffective [Unknown]
  - Urinary retention [Fatal]

NARRATIVE: CASE EVENT DATE: 20160304
